FAERS Safety Report 7723548-0 (Version None)
Quarter: 2011Q3

REPORT INFORMATION
  Report Type: 
  Country: None (occurrence: None)
  Receive Date: 20110901
  Receipt Date: 20110818
  Transmission Date: 20111222
  Serious: Yes (Hospitalization)
  Sender: FDA-Public Use
  Company Number: PHHY2011BR74432

PATIENT
  Sex: Female

DRUGS (10)
  1. DIOVAN [Suspect]
     Dosage: 80 MG, DAILY
     Route: 048
  2. OLCADIL [Concomitant]
     Dosage: 1 MG, UNK
  3. FASLODEX [Concomitant]
     Indication: BREAST CANCER
     Dosage: UNK MG, QMO
  4. DIOVAN [Suspect]
     Indication: HYPERTENSION
     Dosage: 80 MG, DAILY
     Route: 048
  5. LEXAPRO [Concomitant]
     Indication: EMOTIONAL DISORDER
     Dosage: 15 MG, UNK
  6. DIOVAN [Suspect]
     Dosage: 40 MG, ONCE A DAY
  7. REMERON [Concomitant]
     Dosage: 15 MG, UNK
  8. AMIODARONE HCL [Concomitant]
     Indication: ARRHYTHMIA
     Dosage: 2 MG, UNK
  9. ARIMIDEX [Concomitant]
     Indication: BREAST CANCER
     Dosage: UNK UKN, UNK
  10. DIOVAN [Suspect]
     Dosage: 40 MG, ONCE A DAY

REACTIONS (1)
  - ISCHAEMIA [None]
